FAERS Safety Report 10931131 (Version 1)
Quarter: 2015Q1

REPORT INFORMATION
  Report Type: Spontaneous
  Country: GB (occurrence: GB)
  Receive Date: 20150319
  Receipt Date: 20150319
  Transmission Date: 20150721
  Serious: Yes (Other)
  Sender: FDA-Public Use
  Company Number: GB-BRISTOL-MYERS SQUIBB COMPANY-BMS-2015-014593

PATIENT
  Age: 78 Year
  Sex: Male
  Weight: 112 kg

DRUGS (1)
  1. ELIQUIS [Suspect]
     Active Substance: APIXABAN
     Indication: THROMBOCYTOPENIA
     Dosage: 1 DF, BID
     Route: 048
     Dates: start: 20150123

REACTIONS (4)
  - Gingival swelling [Recovered/Resolved]
  - Lip swelling [Recovered/Resolved]
  - Off label use [Unknown]
  - Lip haemorrhage [Unknown]

NARRATIVE: CASE EVENT DATE: 20150216
